FAERS Safety Report 6969482-5 (Version None)
Quarter: 2010Q3

REPORT INFORMATION
  Report Type: 
  Country: None (occurrence: None)
  Receive Date: 20100902
  Receipt Date: 20100826
  Transmission Date: 20110219
  Serious: Yes (Hospitalization)
  Sender: FDA-Public Use
  Company Number: 2010MA002052

PATIENT
  Age: 53 Year
  Sex: Male

DRUGS (6)
  1. SULFATRIM PEDIATRIC [Suspect]
  2. ACETYLSALICYLIC ACID [Concomitant]
  3. WARFARIN SODIUM [Concomitant]
  4. METOPROLOL TARTRATE [Concomitant]
  5. TORSEMIDE [Concomitant]
  6. PREV MEDS [Concomitant]

REACTIONS (12)
  - ARTHRALGIA [None]
  - BLISTER [None]
  - BLOOD PRESSURE DIASTOLIC DECREASED [None]
  - BODY TEMPERATURE INCREASED [None]
  - DRUG HYPERSENSITIVITY [None]
  - HEART RATE IRREGULAR [None]
  - HEART SOUNDS ABNORMAL [None]
  - PALPABLE PURPURA [None]
  - PETECHIAE [None]
  - SKIN ULCER [None]
  - VASCULITIS [None]
  - VENOUS INSUFFICIENCY [None]
